FAERS Safety Report 25490256 (Version 2)
Quarter: 2025Q3

REPORT INFORMATION
  Report Type: Spontaneous
  Country: US (occurrence: US)
  Receive Date: 20250628
  Receipt Date: 20250903
  Transmission Date: 20251021
  Serious: No
  Sender: SANOFI AVENTIS
  Company Number: US-SA-2025SA182147

PATIENT
  Sex: Female

DRUGS (1)
  1. DUPIXENT [Suspect]
     Active Substance: DUPILUMAB
     Indication: Nasal polyps
     Dosage: 300 MG, QOW
     Route: 058
     Dates: start: 20241022

REACTIONS (6)
  - Injection site pain [Unknown]
  - Oral mucosal blistering [Unknown]
  - Rash erythematous [Unknown]
  - Rash pruritic [Unknown]
  - Skin exfoliation [Unknown]
  - Skin warm [Unknown]

NARRATIVE: CASE EVENT DATE: 20250701
